FAERS Safety Report 6539856-5 (Version None)
Quarter: 2010Q1

REPORT INFORMATION
  Report Type: 
  Country: None (occurrence: None)
  Receive Date: 20100111
  Receipt Date: 20100104
  Transmission Date: 20100710
  Serious: Yes (Hospitalization)
  Sender: FDA-Public Use
  Company Number: SPV1-2010-00002

PATIENT
  Age: 17 Year
  Sex: Female

DRUGS (1)
  1. DAYTRANA [Suspect]
     Indication: DRUG USE FOR UNKNOWN INDICATION

REACTIONS (4)
  - ABNORMAL BEHAVIOUR [None]
  - BLOOD CREATINE PHOSPHOKINASE INCREASED [None]
  - INCORRECT ROUTE OF DRUG ADMINISTRATION [None]
  - OFF LABEL USE [None]
